FAERS Safety Report 17856885 (Version 1)
Quarter: 2020Q2

REPORT INFORMATION
  Report Type: Spontaneous
  Country: US (occurrence: US)
  Receive Date: 20200603
  Receipt Date: 20200603
  Transmission Date: 20200714
  Serious: No
  Sender: FDA-Public Use
  Company Number: US-MAYNE PHARMA-2020MYN000164

PATIENT

DRUGS (2)
  1. FLUOROURACIL. [Suspect]
     Active Substance: FLUOROURACIL
     Indication: PRODUCT USED FOR UNKNOWN INDICATION
     Dosage: UNK
     Route: 061
     Dates: start: 201809, end: 201809
  2. CALCIPOTRIENE. [Concomitant]
     Active Substance: CALCIPOTRIENE
     Indication: PRODUCT USED FOR UNKNOWN INDICATION

REACTIONS (4)
  - Application site injury [Recovering/Resolving]
  - Burns third degree [Recovering/Resolving]
  - Application site pain [Recovering/Resolving]
  - Wound complication [Recovering/Resolving]

NARRATIVE: CASE EVENT DATE: 201809
